FAERS Safety Report 10146762 (Version 1)
Quarter: 2014Q2

REPORT INFORMATION
  Report Type: Spontaneous
  Country: US (occurrence: US)
  Receive Date: 20140501
  Receipt Date: 20140501
  Transmission Date: 20141212
  Serious: No
  Sender: FDA-Public Use
  Company Number: US-BAUSCH-BL-2013-003802

PATIENT
  Age: 84 Year
  Sex: Male

DRUGS (10)
  1. LOTEMAX (LOTEPREDNOL ETABONATE OPHTHALMIC SUSPENSION 0.5%) [Suspect]
     Indication: PRODUCT USED FOR UNKNOWN INDICATION
     Dosage: OPHTHALMIC
     Route: 047
  2. RESTASIS [Suspect]
     Indication: DRY EYE
     Dosage: 1 DROP IN EACH EYE; TWICE DAILY; RIGHT EYE
     Route: 047
     Dates: start: 20130509
  3. RESTASIS [Suspect]
     Dosage: 1 DROP IN EACH EYE; TWICE DAILY; LEFT EYE
     Route: 047
     Dates: start: 20130509
  4. DOXYCYCLINE [Concomitant]
  5. BENICAR [Concomitant]
     Indication: HYPERTENSION
  6. LIPITOR [Concomitant]
     Indication: BLOOD CHOLESTEROL INCREASED
  7. ALLOPURINOL [Concomitant]
     Indication: BLOOD URIC ACID ABNORMAL
  8. PRILOSEC [Concomitant]
     Indication: GASTROOESOPHAGEAL REFLUX DISEASE
  9. ASA [Concomitant]
  10. VITAMINS NOS [Concomitant]

REACTIONS (4)
  - Vision blurred [Not Recovered/Not Resolved]
  - Eye discharge [Unknown]
  - Balance disorder [Not Recovered/Not Resolved]
  - Dizziness [Not Recovered/Not Resolved]
